FAERS Safety Report 24836303 (Version 2)
Quarter: 2025Q2

REPORT INFORMATION
  Report Type: Spontaneous
  Country: US (occurrence: US)
  Receive Date: 20250113
  Receipt Date: 20250523
  Transmission Date: 20250717
  Serious: No
  Sender: MERCK SHARP & DOHME LLC
  Company Number: US-009507513-2501USA002021

PATIENT
  Sex: Female
  Weight: 56.236 kg

DRUGS (22)
  1. WINREVAIR [Suspect]
     Active Substance: SOTATERCEPT-CSRK
     Indication: Product used for unknown indication
     Route: 058
     Dates: start: 2024
  2. WINREVAIR [Suspect]
     Active Substance: SOTATERCEPT-CSRK
  3. WINREVAIR [Suspect]
     Active Substance: SOTATERCEPT-CSRK
  4. WINREVAIR [Suspect]
     Active Substance: SOTATERCEPT-CSRK
  5. REMODULIN [Suspect]
     Active Substance: TREPROSTINIL
     Indication: Pulmonary arterial hypertension
     Route: 042
     Dates: start: 20240306
  6. TADALAFIL [Suspect]
     Active Substance: TADALAFIL
  7. FISH OIL [Concomitant]
     Active Substance: FISH OIL
  8. ROSUVASTATIN CALCIUM [Concomitant]
     Active Substance: ROSUVASTATIN CALCIUM
  9. ALBUTEROL SULFATE [Concomitant]
     Active Substance: ALBUTEROL SULFATE
  10. SODIUM CHLORIDE [Concomitant]
     Active Substance: SODIUM CHLORIDE
  11. FLUTICASONE PROPIONATE [Concomitant]
     Active Substance: FLUTICASONE PROPIONATE
  12. ELIQUIS [Concomitant]
     Active Substance: APIXABAN
  13. FAMOTIDINE [Concomitant]
     Active Substance: FAMOTIDINE
  14. LISINOPRIL [Concomitant]
     Active Substance: LISINOPRIL
  15. CALCIUM CITRATE\VITAMIN D [Concomitant]
     Active Substance: CALCIUM CITRATE\VITAMIN D
  16. LATANOPROST [Concomitant]
     Active Substance: LATANOPROST
  17. SPIRONOLACTONE [Concomitant]
     Active Substance: SPIRONOLACTONE
  18. OXYGEN [Concomitant]
     Active Substance: OXYGEN
  19. TORSEMIDE [Concomitant]
     Active Substance: TORSEMIDE
  20. MIDODRINE [Concomitant]
     Active Substance: MIDODRINE
  21. TYLENOL [Concomitant]
     Active Substance: ACETAMINOPHEN
  22. LOPERAMIDE [Concomitant]
     Active Substance: LOPERAMIDE

REACTIONS (3)
  - Nausea [Unknown]
  - Palmar erythema [Unknown]
  - Headache [Unknown]

NARRATIVE: CASE EVENT DATE: 20240101
